FAERS Safety Report 9502027 (Version 1)
Quarter: 2013Q3

REPORT INFORMATION
  Report Type: Spontaneous
  Country: IT (occurrence: IT)
  Receive Date: 20130905
  Receipt Date: 20130905
  Transmission Date: 20140515
  Serious: Yes (Other)
  Sender: FDA-Public Use
  Company Number: IT-BAXTER-2013BAX034532

PATIENT
  Age: 59 Year
  Sex: Female
  Weight: 42 kg

DRUGS (6)
  1. ENDOXAN BAXTER [Suspect]
     Indication: BREAST CANCER
     Route: 042
     Dates: start: 20130308, end: 20130430
  2. DOCETAXEL [Suspect]
     Indication: BREAST CANCER
     Route: 042
     Dates: start: 20130308, end: 20130430
  3. HERCEPTIN [Suspect]
     Indication: BREAST CANCER
     Route: 042
     Dates: start: 20130308, end: 20130430
  4. RANIDIL [Concomitant]
     Indication: PRODUCT USED FOR UNKNOWN INDICATION
     Route: 042
     Dates: start: 20130308, end: 20130430
  5. SOLDESAM [Concomitant]
     Indication: PRODUCT USED FOR UNKNOWN INDICATION
     Route: 042
     Dates: start: 20130308, end: 20130430
  6. ONDANSETRON HIKMA [Concomitant]
     Indication: PROPHYLAXIS OF NAUSEA AND VOMITING
     Route: 042
     Dates: start: 20130308, end: 20130430

REACTIONS (6)
  - Diarrhoea [Unknown]
  - Fatigue [Unknown]
  - Formication [Unknown]
  - Haematuria [Unknown]
  - Pain in extremity [Unknown]
  - Vomiting [Unknown]
